FAERS Safety Report 6413607-7 (Version None)
Quarter: 2009Q4

REPORT INFORMATION
  Report Type: 
  Country: None (occurrence: None)
  Receive Date: 20091026
  Receipt Date: 20091016
  Transmission Date: 20100525
  Serious: Yes (Hospitalization, Other)
  Sender: FDA-Public Use
  Company Number: DE-ABBOTT-09P-062-0567280-00

PATIENT
  Sex: Male

DRUGS (1)
  1. CLARITHROMYCIN [Suspect]
     Indication: BRONCHITIS BACTERIAL
     Route: 048
     Dates: start: 20090225, end: 20090301

REACTIONS (5)
  - DECREASED INTEREST [None]
  - DEPERSONALISATION [None]
  - DEREALISATION [None]
  - FEELING ABNORMAL [None]
  - MERYCISM [None]
